FAERS Safety Report 7042894-X (Version None)
Quarter: 2010Q4

REPORT INFORMATION
  Report Type: 
  Country: None (occurrence: None)
  Receive Date: 20101013
  Receipt Date: 20100331
  Transmission Date: 20110411
  Serious: No
  Sender: FDA-Public Use
  Company Number: US-ASTRAZENECA-2010SE04902

PATIENT
  Age: 69 Year
  Sex: Female
  Weight: 115.7 kg

DRUGS (14)
  1. SYMBICORT [Suspect]
     Indication: CHRONIC OBSTRUCTIVE PULMONARY DISEASE
     Dosage: 640 MCG
     Route: 055
     Dates: start: 20080101
  2. SYMBICORT [Suspect]
     Indication: ASTHMA
     Dosage: 640 MCG
     Route: 055
     Dates: start: 20080101
  3. NEXIUM [Suspect]
     Route: 048
  4. LASIX [Concomitant]
  5. KLOR-CON [Concomitant]
  6. VICODIN [Concomitant]
  7. PROVENTIL [Concomitant]
  8. VERAMIST [Concomitant]
  9. CALCIUM WITH D [Concomitant]
  10. ALBUTEROL [Concomitant]
  11. FOSAMAX [Concomitant]
  12. VITAMINS [Concomitant]
  13. PROMETHAZINE [Concomitant]
  14. VERAMYST [Concomitant]

REACTIONS (4)
  - DRUG DOSE OMISSION [None]
  - DYSPNOEA [None]
  - PHARYNGITIS STREPTOCOCCAL [None]
  - PNEUMONIA [None]
